FAERS Safety Report 9702199 (Version 1)
Quarter: 2013Q4

REPORT INFORMATION
  Report Type: Spontaneous
  Country: US (occurrence: US)
  Receive Date: 20131121
  Receipt Date: 20131121
  Transmission Date: 20140711
  Serious: Yes (Other)
  Sender: FDA-Public Use
  Company Number: US-MALLINCKRODT-T201304856

PATIENT
  Age: 64 Year
  Sex: Female

DRUGS (3)
  1. SODIUM IODIDE (I 131) [Suspect]
     Indication: RADIOACTIVE IODINE THERAPY
     Dosage: 50 MCI, UNK
     Route: 065
     Dates: start: 198905
  2. SODIUM IODIDE (I 131) [Suspect]
     Dosage: 146 MCI, UNK
     Route: 065
     Dates: start: 1994
  3. LEVOTHYROXINE [Concomitant]
     Indication: PAPILLARY THYROID CANCER
     Dosage: UNK

REACTIONS (2)
  - Mucoepidermoid carcinoma of salivary gland [Unknown]
  - Treatment failure [Unknown]
